FAERS Safety Report 9207880 (Version 3)
Quarter: 2013Q3

REPORT INFORMATION
  Report Type: Report from Study
  Country: US (occurrence: US)
  Receive Date: 20130403
  Receipt Date: 20130904
  Transmission Date: 20140515
  Serious: Yes (Hospitalization)
  Sender: FDA-Public Use
  Company Number: US-GLAXOSMITHKLINE-B0879386A

PATIENT
  Age: 67 Year
  Sex: Male
  Weight: 57 kg

DRUGS (12)
  1. FLUTICASONE FUROATE [Suspect]
     Indication: CHRONIC OBSTRUCTIVE PULMONARY DISEASE
     Dates: start: 20120402, end: 20130219
  2. FLUTICASONE FUROATE [Suspect]
     Dates: start: 20130223, end: 20130315
  3. FLUTICASONE FUROATE [Suspect]
     Dates: start: 20130317
  4. LISINOPRIL [Concomitant]
     Indication: HYPERTENSION
     Dosage: 5MG PER DAY
     Route: 048
     Dates: start: 2004
  5. TERAZOSIN HCL [Concomitant]
     Indication: HYPERTENSION
     Route: 048
     Dates: start: 2011
  6. METOPROLOL TARTRATE [Concomitant]
     Indication: ARTERIOSCLEROSIS CORONARY ARTERY
     Dosage: 50MG PER DAY
     Route: 048
     Dates: start: 2004
  7. PLAVIX [Concomitant]
     Indication: ARTERIOSCLEROSIS CORONARY ARTERY
     Dosage: 75MG PER DAY
     Route: 048
     Dates: start: 2004
  8. ASPIRIN [Concomitant]
     Indication: ARTERIOSCLEROSIS CORONARY ARTERY
     Dosage: 81MG PER DAY
     Route: 048
     Dates: start: 2004
  9. PANTOPRAZOLE [Concomitant]
     Indication: DYSPEPSIA
     Dosage: 40MG PER DAY
     Route: 048
     Dates: start: 201107
  10. CIALIS [Concomitant]
     Indication: ERECTILE DYSFUNCTION
     Dosage: 5MG PER DAY
     Route: 048
     Dates: start: 201203
  11. SIMVASTATIN [Concomitant]
     Indication: HYPERLIPIDAEMIA
     Dosage: 40MG PER DAY
     Route: 048
     Dates: start: 2004
  12. NITROGLYCERIN [Concomitant]
     Indication: ARTERIOSCLEROSIS CORONARY ARTERY
     Route: 060
     Dates: start: 2004

REACTIONS (1)
  - Urinary retention [Recovered/Resolved]
